FAERS Safety Report 15908115 (Version 3)
Quarter: 2019Q1

REPORT INFORMATION
  Report Type: Spontaneous
  Country: BR (occurrence: BR)
  Receive Date: 20190204
  Receipt Date: 20190305
  Transmission Date: 20190417
  Serious: Yes (Other)
  Sender: FDA-Public Use
  Company Number: BR-PFIZER INC-2019046303

PATIENT
  Age: 38 Year
  Sex: Male
  Weight: 72 kg

DRUGS (20)
  1. VFEND [Suspect]
     Active Substance: VORICONAZOLE
     Indication: ASPERGILLUS INFECTION
     Dosage: 200 MG, 2X/DAY (2 AMPOULES, 12/12 H)
     Route: 042
     Dates: start: 20190102, end: 20190130
  2. DIMORF [Concomitant]
     Active Substance: MORPHINE SULFATE
     Dosage: 2 MG /2 ML, 3X/DAY
     Route: 042
  3. HIRUDOID [Concomitant]
     Active Substance: GLYCOSAMINOGLYCANS
     Dosage: 40 G, 4X/DAY
  4. LACTULONA [Concomitant]
     Dosage: 15 ML, AS NEEDED
  5. TYLENOL [Concomitant]
     Active Substance: ACETAMINOPHEN
     Dosage: 750 MG, AS NEEDED
     Route: 048
  6. VFEND [Suspect]
     Active Substance: VORICONAZOLE
     Indication: ASPERGILLUS INFECTION
     Dosage: UNK
     Route: 048
     Dates: start: 20190116
  7. DECADRON [Concomitant]
     Active Substance: DEXAMETHASONE
     Dosage: 2 MG /1 ML, EVERY 8H
     Route: 042
  8. MERONEM [Concomitant]
     Active Substance: MEROPENEM
     Dosage: 1 G, EVERY 8H
     Route: 042
  9. TIORFAN [Concomitant]
     Active Substance: RACECADOTRIL
     Dosage: 100 MG, AS NEEDED
     Route: 048
  10. ZOFRAN [Concomitant]
     Active Substance: ONDANSETRON HYDROCHLORIDE
     Dosage: 4 MG/ 2 ML, AS NEEDED
     Route: 042
  11. VITAMIN B COMPLEX [Concomitant]
     Active Substance: CYANOCOBALAMIN\DEXPANTHENOL\NIACINAMIDE\PYRIDOXINE HYDROCHLORIDE\RIBOFLAVIN 5^-PHOSPHATE SODIUM\THIAMINE HYDROCHLORIDE\VITAMIN B COMPLEX
     Dosage: 2 ML, EVERY 8H
     Route: 042
  12. SOLU-CORTEF [Concomitant]
     Active Substance: HYDROCORTISONE SODIUM SUCCINATE
     Dosage: 100 MG, AS NEEDED
     Route: 042
  13. SUPERAN [ALIZAPRIDE HYDROCHLORIDE] [Concomitant]
     Dosage: 50 MG / 2 ML
     Route: 042
  14. ANTAK [Concomitant]
     Active Substance: RANITIDINE HYDROCHLORIDE
     Dosage: 50 MG/ 2 ML, EVERY 8H
     Route: 042
  15. LUFTAL [DIMETICONE] [Concomitant]
     Dosage: 40 DROPS. 4X/DAY
     Route: 048
  16. NOVALGINA [Concomitant]
     Active Substance: METAMIZOLE SODIUM
     Dosage: 1G / 2 ML, AS NEEDED
     Route: 042
  17. DRAMIN B6 [Concomitant]
     Dosage: 10 ML AS NEEDED
     Route: 042
  18. MICOSTATIN [Concomitant]
     Dosage: 5 ML, 4X/DAY
     Route: 048
  19. PLAMET [Concomitant]
     Active Substance: BROMOPRIDE
     Dosage: 10 MG/ 2 ML, AS NEEDED
     Route: 042
  20. ZOVIRAX [Concomitant]
     Active Substance: ACYCLOVIR
     Dosage: 200 MG, EVERY 12H
     Route: 048

REACTIONS (4)
  - Skin lesion [Unknown]
  - Sensitisation [Unknown]
  - Rash pruritic [Unknown]
  - Dermatitis bullous [Unknown]

NARRATIVE: CASE EVENT DATE: 20190125
